FAERS Safety Report 5262375-3 (Version None)
Quarter: 2007Q1

REPORT INFORMATION
  Report Type: 
  Country: None (occurrence: None)
  Receive Date: 20061208
  Receipt Date: 20051229
  Transmission Date: 20070707
  Serious: Yes (Other)
  Sender: FDA-Public Use
  Company Number: 2005UW19538

PATIENT
  Age: 3 Year
  Sex: Male

DRUGS (1)
  1. NEXIUM [Suspect]

REACTIONS (1)
  - MEDICATION ERROR [None]
